APPROVED DRUG PRODUCT: FLUIDIL
Active Ingredient: CYCLOTHIAZIDE
Strength: 2MG
Dosage Form/Route: TABLET;ORAL
Application: N018173 | Product #001
Applicant: PHARMACIA AND UPJOHN CO
Approved: Approved Prior to Jan 1, 1982 | RLD: No | RS: No | Type: DISCN